FAERS Safety Report 13841034 (Version 1)
Quarter: 2017Q3

REPORT INFORMATION
  Report Type: Spontaneous
  Country: DE (occurrence: DE)
  Receive Date: 20170807
  Receipt Date: 20170807
  Transmission Date: 20171127
  Serious: Yes (Other)
  Sender: FDA-Public Use
  Company Number: DE-PFIZER INC-2017278854

PATIENT
  Age: 77 Year
  Sex: Male

DRUGS (7)
  1. UNACID PD [Suspect]
     Active Substance: SULTAMICILLIN TOSYLATE
     Indication: DENTAL OPERATION
     Dosage: 2 DF, 2X/DAY (MORNING AND EVENING)
     Dates: start: 20170621
  2. ALLOPURINOL. [Concomitant]
     Active Substance: ALLOPURINOL
     Dosage: UNK
  3. UNACID [Suspect]
     Active Substance: AMPICILLIN SODIUM\SULBACTAM SODIUM
     Indication: DENTAL OPERATION
     Dosage: UNK; 3 INFUSIONS
     Dates: start: 20170619, end: 201706
  4. ENALAPRIL [Concomitant]
     Active Substance: ENALAPRIL
     Dosage: UNK
  5. AMLODIPINE BESILATE [Concomitant]
     Active Substance: AMLODIPINE BESYLATE
     Dosage: UNK
     Dates: start: 201704
  6. L-THYROXIN HENNING [Concomitant]
     Active Substance: LEVOTHYROXINE SODIUM
     Dosage: UNK
  7. TURFA GAMMA [Concomitant]
     Dosage: UNK

REACTIONS (1)
  - Melaena [Recovered/Resolved]

NARRATIVE: CASE EVENT DATE: 20170625
